FAERS Safety Report 6321575-1 (Version None)
Quarter: 2009Q3

REPORT INFORMATION
  Report Type: 
  Country: None (occurrence: None)
  Receive Date: 20090820
  Receipt Date: 20090820
  Transmission Date: 20100115
  Serious: Yes (Hospitalization)
  Sender: FDA-Public Use
  Company Number: None

PATIENT

DRUGS (3)
  1. PROAIR HFA [Suspect]
     Indication: ASTHMA
     Dates: start: 20081001, end: 20090501
  2. FLOVENT [Concomitant]
  3. SINGULAIR [Concomitant]

REACTIONS (1)
  - NO THERAPEUTIC RESPONSE [None]
